FAERS Safety Report 5898572-3 (Version None)
Quarter: 2008Q3

REPORT INFORMATION
  Report Type: 
  Country: None (occurrence: None)
  Receive Date: 20080925
  Receipt Date: 20080215
  Transmission Date: 20090109
  Serious: No
  Sender: FDA-Public Use
  Company Number: A0707179A

PATIENT
  Age: 74 Year
  Sex: Female

DRUGS (4)
  1. WELLBUTRIN XL [Suspect]
     Indication: DRUG USE FOR UNKNOWN INDICATION
     Dosage: 300MG IN THE MORNING
     Route: 048
     Dates: start: 20071120, end: 20080117
  2. MAXZIDE [Concomitant]
  3. SYNTHROID [Concomitant]
  4. XANAX [Concomitant]

REACTIONS (2)
  - BREAST DISCHARGE [None]
  - BREAST TENDERNESS [None]
